FAERS Safety Report 17554257 (Version 1)
Quarter: 2020Q1

REPORT INFORMATION
  Report Type: Spontaneous
  Country: DE (occurrence: DE)
  Receive Date: 20200318
  Receipt Date: 20200318
  Transmission Date: 20200409
  Serious: Yes (Life-Threatening, Other)
  Sender: FDA-Public Use
  Company Number: DE-TEVA-2020-DE-1202313

PATIENT
  Age: 78 Year
  Sex: Male
  Weight: 100 kg

DRUGS (12)
  1. FOLSAURE 5MG [Concomitant]
     Dosage: ONLY ON SATURDAYS
  2. METAMIZOL [Suspect]
     Active Substance: METAMIZOLE SODIUM
     Indication: GROIN PAIN
     Dosage: 2000 MILLIGRAM DAILY; 2X1/D
     Route: 048
     Dates: start: 20200201
  3. COLECALCIFEROL 1000 IE [Concomitant]
     Dosage: 1 DOSAGE FORMS DAILY; 1X/D, 1 DF
  4. METAMIZOL [Suspect]
     Active Substance: METAMIZOLE SODIUM
     Indication: OROPHARYNGEAL PAIN
  5. INSULIN GLARGIN [Concomitant]
     Active Substance: INSULIN GLARGINE
     Indication: DIABETES MELLITUS
     Dosage: 16 IU
     Route: 058
  6. MIRTAZAPIN 15MG [Concomitant]
     Active Substance: MIRTAZAPINE
     Indication: DEPRESSION
     Dosage: 15 MILLIGRAM DAILY; 1X/D
     Route: 048
  7. MTX (METHOTREXATE) [Suspect]
     Active Substance: METHOTREXATE
     Indication: RHEUMATOID ARTHRITIS
     Dosage: FRIDAYS CONTINUOUS MEDICATION, 1 DF
     Route: 065
  8. MCP [Concomitant]
     Active Substance: METOCLOPRAMIDE HYDROCHLORIDE
     Indication: NAUSEA
     Dosage: 1X/D, 1 DF
     Route: 048
  9. FENTANYL TRANSDERMAL SYSTEM [Suspect]
     Active Substance: FENTANYL
     Indication: PAIN
     Dosage: LONG-TERM MEDICATION, LAST CHANGE 13.02.2020, 1 DF
     Route: 065
  10. ACTRAPID [Concomitant]
     Active Substance: INSULIN HUMAN
     Indication: DIABETES MELLITUS
     Dosage: ACCORDING TO THE SCHEME
     Route: 058
  11. IBUPROFEN 400MG [Concomitant]
     Active Substance: IBUPROFEN
     Indication: PAIN
     Dosage: IF NECESSARY, 400 MG
     Route: 048
  12. L-THYROXIN 100 [Concomitant]
     Active Substance: LEVOTHYROXINE SODIUM
     Indication: HYPOTHYROIDISM
     Dosage: 100 MICROGRAM DAILY; 1X/D
     Route: 065

REACTIONS (9)
  - Abdominal pain [Not Recovered/Not Resolved]
  - Thrombocytopenia [Not Recovered/Not Resolved]
  - Candida infection [Not Recovered/Not Resolved]
  - Leukopenia [Not Recovered/Not Resolved]
  - Agranulocytosis [Not Recovered/Not Resolved]
  - Bone marrow failure [Not Recovered/Not Resolved]
  - Petechiae [Not Recovered/Not Resolved]
  - Abdominal pain upper [Not Recovered/Not Resolved]
  - Umbilical hernia [Not Recovered/Not Resolved]

NARRATIVE: CASE EVENT DATE: 20200202
